FAERS Safety Report 14333947 (Version 3)
Quarter: 2018Q1

REPORT INFORMATION
  Report Type: Other
  Country: BE (occurrence: BE)
  Receive Date: 20171228
  Receipt Date: 20180212
  Transmission Date: 20180509
  Serious: Yes (Hospitalization, Other)
  Sender: FDA-Public Use
  Company Number: BE-RARE DISEASE THERAPEUTICS, INC.-2037933

PATIENT
  Age: 71 Year
  Sex: Female

DRUGS (12)
  1. METHOTREXATE. [Suspect]
     Active Substance: METHOTREXATE
     Route: 048
     Dates: start: 20171106, end: 20171106
  2. VINCRISTINE SULFATE. [Suspect]
     Active Substance: VINCRISTINE SULFATE
     Dates: start: 20170224
  3. PEGASPARGASE [Suspect]
     Active Substance: PEGASPARGASE
     Route: 042
     Dates: start: 20170624
  4. CYTARABINE. [Suspect]
     Active Substance: CYTARABINE
     Dates: start: 20170622
  5. ADRIAMYCIN [Suspect]
     Active Substance: DOXORUBICIN HYDROCHLORIDE
     Dates: start: 20170224
  6. PURIXAN [Suspect]
     Active Substance: MERCAPTOPURINE
     Route: 048
     Dates: start: 20171030, end: 20171111
  7. METHOTREXATE. [Suspect]
     Active Substance: METHOTREXATE
     Route: 048
     Dates: start: 20171106, end: 20171106
  8. METHOTREXATE. [Suspect]
     Active Substance: METHOTREXATE
     Route: 037
     Dates: start: 20170706
  9. CLOFARABINE. [Suspect]
     Active Substance: CLOFARABINE
     Dates: start: 20170110, end: 20170114
  10. PREDNISONE. [Suspect]
     Active Substance: PREDNISONE
     Dates: start: 20170224
  11. PURIXAN [Suspect]
     Active Substance: MERCAPTOPURINE
     Indication: PRODUCT USED FOR UNKNOWN INDICATION
     Dates: end: 20171111
  12. PREDNISOLONE. [Suspect]
     Active Substance: PREDNISOLONE
     Dates: start: 20171030, end: 20171105

REACTIONS (6)
  - Pyrexia [Unknown]
  - Mucosal inflammation [Recovered/Resolved]
  - Gastrointestinal inflammation [None]
  - Hip fracture [Not Recovered/Not Resolved]
  - Intervertebral discitis [Recovered/Resolved]
  - Febrile neutropenia [Not Recovered/Not Resolved]

NARRATIVE: CASE EVENT DATE: 20170120
